FAERS Safety Report 5307166-X (Version None)
Quarter: 2007Q2

REPORT INFORMATION
  Report Type: 
  Country: None (occurrence: None)
  Receive Date: 20070425
  Receipt Date: 20070116
  Transmission Date: 20071010
  Serious: No
  Sender: FDA-Public Use
  Company Number: US-AMGEN-US207045

PATIENT
  Sex: Female

DRUGS (2)
  1. VECTIBIX [Suspect]
     Indication: DRUG USE FOR UNKNOWN INDICATION
     Route: 065
     Dates: start: 20070103
  2. IRINOTECAN HCL [Concomitant]
     Route: 065

REACTIONS (4)
  - PAIN [None]
  - PRURITUS [None]
  - RASH [None]
  - SWELLING FACE [None]
